FAERS Safety Report 17674622 (Version 3)
Quarter: 2020Q2

REPORT INFORMATION
  Report Type: Spontaneous
  Country: US (occurrence: US)
  Receive Date: 20200416
  Receipt Date: 20200524
  Transmission Date: 20200714
  Serious: No
  Sender: FDA-Public Use
  Company Number: US-GLAXOSMITHKLINE-US2020AMR064579

PATIENT
  Sex: Female

DRUGS (2)
  1. ZEJULA [Suspect]
     Active Substance: NIRAPARIB
     Indication: OVARIAN CANCER
     Dosage: 200 MG, QD
     Dates: start: 20200403
  2. ZEJULA [Suspect]
     Active Substance: NIRAPARIB
     Dosage: 200 MG, QD
     Dates: end: 20200518

REACTIONS (7)
  - Dry throat [Unknown]
  - Nausea [Unknown]
  - Heart rate increased [Unknown]
  - Cough [Unknown]
  - Fatigue [Unknown]
  - Constipation [Unknown]
  - Computerised tomogram abnormal [Unknown]
